FAERS Safety Report 10533556 (Version 2)
Quarter: 2014Q4

REPORT INFORMATION
  Report Type: Report from Study
  Country: US (occurrence: US)
  Receive Date: 20141022
  Receipt Date: 20141120
  Transmission Date: 20150529
  Serious: Yes (Death)
  Sender: FDA-Public Use
  Company Number: US-BRISTOL-MYERS SQUIBB COMPANY-21489513

PATIENT
  Age: 75 Year
  Sex: Female
  Weight: 73.9 kg

DRUGS (9)
  1. MYCOPHENOLATE MOFETIL. [Suspect]
     Active Substance: MYCOPHENOLATE MOFETIL
     Dates: start: 20111220
  2. PREDNISONE. [Concomitant]
     Active Substance: PREDNISONE
  3. DACLIZUMAB [Concomitant]
     Active Substance: DACLIZUMAB
  4. SIMULECT [Concomitant]
     Active Substance: BASILIXIMAB
  5. SOLU-MEDROL [Concomitant]
     Active Substance: METHYLPREDNISOLONE SODIUM SUCCINATE
  6. BELATACEPT [Suspect]
     Active Substance: BELATACEPT
     Dosage: LAST DOSE:01-JUN-2012,14-DEC-2012,31-MAY-2013,22-AUG-2013
     Dates: start: 20111220
  7. METHYLPREDNISONE [Concomitant]
     Active Substance: METHYLPREDNISOLONE
  8. MEDROL [Concomitant]
     Active Substance: METHYLPREDNISOLONE
  9. DECADRON [Concomitant]
     Active Substance: DEXAMETHASONE

REACTIONS (1)
  - Encephalitis cytomegalovirus [Fatal]
